FAERS Safety Report 4320145-4 (Version None)
Quarter: 2004Q1

REPORT INFORMATION
  Report Type: 
  Country: None (occurrence: None)
  Receive Date: 20040317
  Receipt Date: 20040311
  Transmission Date: 20041129
  Serious: Yes (Death)
  Sender: FDA-Public Use
  Company Number: HQWYE576827JAN04

PATIENT
  Age: 62 Year
  Sex: Male

DRUGS (9)
  1. GEMTUZUMAB OZOGAMICIN (GEMTUZUMAB OZOGAMICIN , INJECTION) [Suspect]
     Indication: ACUTE MYELOID LEUKAEMIA
     Dosage: INTRAVENOUS; 6 MG 1X PER 1 DAY, INTRAVENOUS
     Route: 042
     Dates: start: 20040106, end: 20040106
  2. GEMTUZUMAB OZOGAMICIN (GEMTUZUMAB OZOGAMICIN , INJECTION) [Suspect]
     Indication: ACUTE MYELOID LEUKAEMIA
     Dosage: INTRAVENOUS; 6 MG 1X PER 1 DAY, INTRAVENOUS
     Route: 042
     Dates: start: 20031020
  3. ARA-C (CYTARABIE, ) [Suspect]
     Indication: ACUTE MYELOID LEUKAEMIA
     Dosage: 200 MG 1X PER 1 DAY, INTRAVENOUS
     Route: 042
     Dates: start: 20040107, end: 20040111
  4. ETOPOSIDE [Suspect]
     Indication: ACUTE MYELOID LEUKAEMIA
     Dosage: 200 MG, 1X PER 1 DAY, INTRAVENOUS; 200 MG; INTRAVENOUS
     Route: 042
     Dates: start: 20040107, end: 20040109
  5. ETOPOSIDE [Suspect]
     Indication: ACUTE MYELOID LEUKAEMIA
     Dosage: 200 MG, 1X PER 1 DAY, INTRAVENOUS; 200 MG; INTRAVENOUS
     Route: 042
     Dates: start: 20031226
  6. IDARUBICIN HCL [Suspect]
     Indication: ACUTE MYELOID LEUKAEMIA
     Dosage: 16 MG 1X PER 1 DAY, INTRAVENOUS
     Route: 042
     Dates: start: 20040107, end: 20040107
  7. IDARUBICIN HCL [Suspect]
     Indication: ACUTE MYELOID LEUKAEMIA
     Dosage: 16 MG 1X PER 1 DAY, INTRAVENOUS
     Route: 042
     Dates: start: 20040109, end: 20040109
  8. IDARUBICIN HCL [Suspect]
     Indication: ACUTE MYELOID LEUKAEMIA
     Dosage: 16 MG 1X PER 1 DAY, INTRAVENOUS
     Route: 042
     Dates: start: 20040111, end: 20040111
  9. COTRIM [Concomitant]

REACTIONS (5)
  - ACUTE RESPIRATORY DISTRESS SYNDROME [None]
  - MUCOSAL INFLAMMATION [None]
  - PANCYTOPENIA [None]
  - PNEUMONIA [None]
  - STREPTOCOCCAL SEPSIS [None]
